FAERS Safety Report 15337701 (Version 3)
Quarter: 2019Q2

REPORT INFORMATION
  Report Type: Spontaneous
  Country: US (occurrence: US)
  Receive Date: 20180831
  Receipt Date: 20190402
  Transmission Date: 20190711
  Serious: No
  Sender: FDA-Public Use
  Company Number: PHEH2018US035392

PATIENT
  Sex: Female

DRUGS (1)
  1. TASIGNA [Suspect]
     Active Substance: NILOTINIB
     Indication: CHRONIC MYELOID LEUKAEMIA
     Dosage: 400 MG, BID (EVERY 12 HOURS)
     Route: 048

REACTIONS (5)
  - Headache [Unknown]
  - Alopecia [Unknown]
  - Rash [Unknown]
  - Onychomycosis [Unknown]
  - Musculoskeletal pain [Unknown]
